FAERS Safety Report 16434271 (Version 1)
Quarter: 2019Q2

REPORT INFORMATION
  Report Type: Report from Study
  Country: US (occurrence: US)
  Receive Date: 20190614
  Receipt Date: 20190614
  Transmission Date: 20190711
  Serious: Yes (Death, Hospitalization)
  Sender: FDA-Public Use
  Company Number: US-ASTRAZENECA-2019SE69858

PATIENT
  Age: 20171 Day
  Sex: Female

DRUGS (1)
  1. TAGRISSO [Suspect]
     Active Substance: OSIMERTINIB
     Indication: LUNG CARCINOMA CELL TYPE UNSPECIFIED STAGE 0
     Dosage: 80MG/G DAILY
     Route: 048
     Dates: start: 20180302

REACTIONS (2)
  - Death [Fatal]
  - Bile duct obstruction [Unknown]

NARRATIVE: CASE EVENT DATE: 20190502
